FAERS Safety Report 16367478 (Version 1)
Quarter: 2019Q2

REPORT INFORMATION
  Report Type: Spontaneous
  Country: US (occurrence: US)
  Receive Date: 20190529
  Receipt Date: 20190529
  Transmission Date: 20190711
  Serious: Yes (Other)
  Sender: FDA-Public Use
  Company Number: US-OTSUKA-2018_031835

PATIENT
  Sex: Female

DRUGS (1)
  1. SAMSCA [Suspect]
     Active Substance: TOLVAPTAN
     Indication: ELECTROLYTE IMBALANCE
     Dosage: UNK
     Route: 065

REACTIONS (2)
  - Rapid correction of hyponatraemia [Recovered/Resolved]
  - Product use in unapproved indication [Unknown]
